FAERS Safety Report 4529739-4 (Version None)
Quarter: 2004Q4

REPORT INFORMATION
  Report Type: 
  Country: None (occurrence: None)
  Receive Date: 20041215
  Receipt Date: 20041215
  Transmission Date: 20050328
  Serious: No
  Sender: FDA-Public Use
  Company Number: None

PATIENT
  Age: 53 Year
  Sex: Male
  Weight: 117.9352 kg

DRUGS (1)
  1. GENTAMICIN [Suspect]
     Indication: APPENDICITIS PERFORATED
     Dosage: 700 MG IV Q24HR
     Route: 042
     Dates: start: 20041117, end: 20041117

REACTIONS (2)
  - HALLUCINATION [None]
  - INFUSION RELATED REACTION [None]
